FAERS Safety Report 9257832 (Version 1)
Quarter: 2013Q1

REPORT INFORMATION
  Report Type: Spontaneous
  Country: US (occurrence: None)
  Receive Date: 20121212
  Receipt Date: 20121212
  Transmission Date: 20140127
  Serious: No
  Sender: FDA-Public Use
  Company Number: 1210USA006225

PATIENT
  Age: 59 Year
  Sex: Female
  Weight: 68.9 kg

DRUGS (3)
  1. RIBAVIRIN (RIBAVIRIN) [Suspect]
     Route: 048
     Dates: start: 20120910
  2. VICTRELIS (BOCEPREVIR) CAPSULE, 200MG [Suspect]
     Indication: CHRONIC HEPATITIS C
     Dates: start: 20121009
  3. PEGASYS (PEGINTERFERON ALFA-2A) [Concomitant]

REACTIONS (20)
  - Anaemia [None]
  - Headache [None]
  - Influenza like illness [None]
  - Decreased appetite [None]
  - Parosmia [None]
  - Palpitations [None]
  - Weight decreased [None]
  - Nocturia [None]
  - Dysgeusia [None]
  - Nausea [None]
  - Eructation [None]
  - Asthenia [None]
  - Fatigue [None]
  - Drug dose omission [None]
  - Vomiting [None]
  - Burning sensation [None]
  - Dysphagia [None]
  - Aphagia [None]
  - Dysgeusia [None]
  - Heart rate increased [None]
